FAERS Safety Report 9269809 (Version 1)
Quarter: 2013Q2

REPORT INFORMATION
  Report Type: Spontaneous
  Country: CA (occurrence: CA)
  Receive Date: 20130503
  Receipt Date: 20130503
  Transmission Date: 20140414
  Serious: Yes (Other)
  Sender: FDA-Public Use
  Company Number: CA-JNJFOC-20120303912

PATIENT
  Sex: Male
  Weight: 84 kg

DRUGS (7)
  1. REMICADE [Suspect]
     Indication: COLITIS ULCERATIVE
     Dosage: 45 INFUSIONS TILL DATE
     Route: 042
  2. SALOFALK ENEMA [Concomitant]
     Route: 065
  3. ALTACE [Concomitant]
     Route: 065
  4. HYDROCHLOROTHIAZIDE [Concomitant]
     Route: 065
  5. ALL OTHER THERAPEUTIC PRODUCTS [Concomitant]
     Route: 065
  6. ADALAT [Concomitant]
     Route: 065
  7. PARIET [Concomitant]
     Route: 065

REACTIONS (2)
  - Skin cancer [Recovering/Resolving]
  - Infection [Unknown]
